FAERS Safety Report 7536463-2 (Version None)
Quarter: 2011Q2

REPORT INFORMATION
  Report Type: 
  Country: None (occurrence: None)
  Receive Date: 20110609
  Receipt Date: 20110224
  Transmission Date: 20111010
  Serious: Yes (Hospitalization, Other)
  Sender: FDA-Public Use
  Company Number: US-BAYER-201029489NA

PATIENT
  Age: 20 Year
  Sex: Female
  Weight: 61.678 kg

DRUGS (10)
  1. YASMIN [Suspect]
     Indication: MENORRHAGIA
  2. DROSPIRENONE AND ETHINYL ESTRADIOL [Suspect]
     Indication: ACNE
  3. FERROUS SULFATE TAB [Concomitant]
     Indication: ANAEMIA
     Dosage: 325 MG, UNK
     Route: 048
     Dates: start: 20060106
  4. YASMIN [Suspect]
     Indication: PREMENSTRUAL SYNDROME
     Dosage: UNK UNK, QD
     Dates: start: 20050101, end: 20070101
  5. YAZ [Suspect]
     Indication: PREMENSTRUAL SYNDROME
     Dosage: UNK UNK, QD
     Dates: start: 20050101, end: 20070101
  6. YAZ [Suspect]
     Indication: MENORRHAGIA
  7. YAZ [Suspect]
     Indication: ACNE
  8. DROSPIRENONE AND ETHINYL ESTRADIOL [Suspect]
     Indication: MENORRHAGIA
  9. DROSPIRENONE AND ETHINYL ESTRADIOL [Suspect]
     Indication: PREMENSTRUAL SYNDROME
     Dosage: UNK UNK, QD
     Dates: start: 20050101, end: 20070101
  10. YASMIN [Suspect]
     Indication: ACNE

REACTIONS (3)
  - HEART RATE IRREGULAR [None]
  - CARDIAC DISORDER [None]
  - ARRHYTHMIA [None]
